FAERS Safety Report 21576671 (Version 1)
Quarter: 2022Q4

REPORT INFORMATION
  Report Type: Other
  Country: US (occurrence: US)
  Receive Date: 20221110
  Receipt Date: 20221110
  Transmission Date: 20230113
  Serious: Yes (Life-Threatening, Hospitalization, Other)
  Sender: FDA-Public Use
  Company Number: US-MLMSERVICE-20221019-3864386-1

PATIENT
  Age: 55 Year
  Sex: Female

DRUGS (5)
  1. ESCITALOPRAM [Interacting]
     Active Substance: ESCITALOPRAM OXALATE
  2. ESCITALOPRAM [Interacting]
     Active Substance: ESCITALOPRAM OXALATE
  3. DILTIAZEM [Interacting]
     Active Substance: DILTIAZEM
     Dosage: LONG-ACTING
  4. METOPROLOL [Interacting]
     Active Substance: METOPROLOL
  5. OMEPRAZOLE [Interacting]
     Active Substance: OMEPRAZOLE

REACTIONS (3)
  - Atrioventricular block complete [Recovering/Resolving]
  - Drug interaction [Unknown]
  - Drug level increased [Unknown]
